FAERS Safety Report 15823929 (Version 5)
Quarter: 2019Q3

REPORT INFORMATION
  Report Type: Spontaneous
  Country: US (occurrence: US)
  Receive Date: 20190114
  Receipt Date: 20190830
  Transmission Date: 20191004
  Serious: Yes (Death, Hospitalization, Other)
  Sender: FDA-Public Use
  Company Number: US-GILEAD-2019-0384373

PATIENT
  Age: 59 Year
  Sex: Female

DRUGS (1)
  1. YESCARTA [Suspect]
     Active Substance: AXICABTAGENE CILOLEUCEL
     Indication: B-CELL LYMPHOMA
     Dosage: UNKNOWN, SINGLE
     Route: 042
     Dates: start: 20181101, end: 20181101

REACTIONS (9)
  - Musculoskeletal disorder [Unknown]
  - Encephalopathy [Unknown]
  - Noninfective encephalitis [Unknown]
  - Human herpes virus 6 serology positive [Unknown]
  - Motor dysfunction [Unknown]
  - Nervous system disorder [Unknown]
  - Seizure like phenomena [Unknown]
  - B-cell lymphoma [Fatal]
  - Neurotoxicity [Unknown]
